FAERS Safety Report 13586876 (Version 1)
Quarter: 2017Q2

REPORT INFORMATION
  Report Type: Spontaneous
  Country: US (occurrence: US)
  Receive Date: 20170526
  Receipt Date: 20170526
  Transmission Date: 20170830
  Serious: No
  Sender: FDA-Public Use
  Company Number: US-ROCHE-653629

PATIENT
  Age: 65 Year
  Sex: Female

DRUGS (9)
  1. PROCRIT [Concomitant]
     Active Substance: ERYTHROPOIETIN
     Indication: INSOMNIA
     Route: 065
  2. SENSIPAR [Concomitant]
     Active Substance: CINACALCET HYDROCHLORIDE
     Indication: DEPRESSION
     Route: 065
  3. FOLIC ACID. [Concomitant]
     Active Substance: FOLIC ACID
     Indication: ANAEMIA
     Route: 065
  4. PROGRAF [Concomitant]
     Active Substance: TACROLIMUS\TACROLIMUS ANHYDROUS
     Indication: CARDIAC MURMUR
     Route: 065
  5. AZATHIOPRINE. [Concomitant]
     Active Substance: AZATHIOPRINE
     Indication: END STAGE RENAL DISEASE
     Dosage: ALT 2/3 TABLETS DAILY
     Route: 065
  6. VALCYTE [Suspect]
     Active Substance: VALGANCICLOVIR HYDROCHLORIDE
     Indication: RESTLESS LEGS SYNDROME
     Route: 065
     Dates: start: 200812, end: 200906
  7. CYTOVENE IV [Suspect]
     Active Substance: GANCICLOVIR SODIUM
     Indication: CYTOMEGALOVIRUS INFECTION
     Route: 042
  8. PROTONIX [Concomitant]
     Active Substance: PANTOPRAZOLE SODIUM
     Indication: BLADDER CANCER
     Route: 065
  9. ASPIRIN. [Concomitant]
     Active Substance: ASPIRIN
     Dosage: FOR AROTIC STENOSIS
     Route: 065

REACTIONS (4)
  - Haemoglobin decreased [Unknown]
  - Weight increased [Not Recovered/Not Resolved]
  - Cytomegalovirus infection [Unknown]
  - Swelling face [Not Recovered/Not Resolved]

NARRATIVE: CASE EVENT DATE: 200907
